FAERS Safety Report 4778999-3 (Version None)
Quarter: 2005Q3

REPORT INFORMATION
  Report Type: 
  Country: None (occurrence: None)
  Receive Date: 20050923
  Receipt Date: 20050913
  Transmission Date: 20060218
  Serious: Yes (Death, Hospitalization)
  Sender: FDA-Public Use
  Company Number: 2005128199

PATIENT
  Age: 83 Year
  Sex: Male

DRUGS (1)
  1. LIPITOR [Suspect]
     Indication: DYSLIPIDAEMIA
     Dosage: 10 MG (10 MG, 1 IN 1 D), ORAL
     Route: 048
     Dates: start: 20021201, end: 20050210

REACTIONS (5)
  - GASTRIC HAEMORRHAGE [None]
  - HAEMATOCHEZIA [None]
  - INFECTION [None]
  - INFLUENZA [None]
  - PNEUMONIA [None]
